FAERS Safety Report 11446241 (Version 1)
Quarter: 2015Q3

REPORT INFORMATION
  Report Type: Spontaneous
  Country: US (occurrence: US)
  Receive Date: 20150902
  Receipt Date: 20150902
  Transmission Date: 20151125
  Serious: No
  Sender: FDA-Public Use
  Company Number: ALCN2015US002202

PATIENT

DRUGS (2)
  1. PREDNISOLONE ACETATE. [Suspect]
     Active Substance: PREDNISOLONE ACETATE
     Indication: IRITIS
     Dosage: UNK, QID
     Route: 047
     Dates: start: 20150325
  2. PREDNISOLONE ACETATE. [Suspect]
     Active Substance: PREDNISOLONE ACETATE
     Indication: CORNEAL OEDEMA

REACTIONS (5)
  - Agitation [Unknown]
  - Dizziness [Unknown]
  - Palpitations [Unknown]
  - Condition aggravated [Unknown]
  - Dysgeusia [Unknown]
